FAERS Safety Report 17301110 (Version 5)
Quarter: 2020Q3

REPORT INFORMATION
  Report Type: Spontaneous
  Country: US (occurrence: US)
  Receive Date: 20200122
  Receipt Date: 20200910
  Transmission Date: 20201102
  Serious: No
  Sender: FDA-Public Use
  Company Number: US-PFIZER INC-2020028131

PATIENT
  Age: 74 Year
  Sex: Male
  Weight: 81.65 kg

DRUGS (1)
  1. LYRICA [Suspect]
     Active Substance: PREGABALIN
     Indication: ARACHNOIDITIS
     Dosage: 150 MG, 2X/DAY (ONCE IN THE MORNING, ONCE IN EVENING)
     Route: 048
     Dates: start: 2017

REACTIONS (3)
  - Panic reaction [Unknown]
  - Product use in unapproved indication [Unknown]
  - Off label use [Unknown]
